FAERS Safety Report 18224482 (Version 1)
Quarter: 2020Q3

REPORT INFORMATION
  Report Type: Spontaneous
  Country: US (occurrence: US)
  Receive Date: 20200902
  Receipt Date: 20200902
  Transmission Date: 20201103
  Serious: No
  Sender: FDA-Public Use
  Company Number: US-PURDUE-USA-2020-0151283

PATIENT
  Sex: Female

DRUGS (1)
  1. OXYCODONE/ ACETAMINOPHEN TABLETS [Suspect]
     Active Substance: ACETAMINOPHEN\OXYCODONE HYDROCHLORIDE
     Indication: PAIN
     Dosage: 7.5/325 MG, DAILY
     Route: 048
     Dates: start: 20200324

REACTIONS (7)
  - Hypersomnia [Unknown]
  - Feeling abnormal [Unknown]
  - Flushing [Unknown]
  - Nausea [Unknown]
  - Migraine [Unknown]
  - Hyperhidrosis [Unknown]
  - Illness [Unknown]

NARRATIVE: CASE EVENT DATE: 20200324
